FAERS Safety Report 13349571 (Version 1)
Quarter: 2017Q1

REPORT INFORMATION
  Report Type: Spontaneous
  Country: AT (occurrence: AT)
  Receive Date: 20170320
  Receipt Date: 20170320
  Transmission Date: 20170428
  Serious: Yes (Other)
  Sender: FDA-Public Use
  Company Number: PHHY2017AT040546

PATIENT
  Age: 64 Year
  Sex: Female

DRUGS (1)
  1. ZYKADIA [Suspect]
     Active Substance: CERITINIB
     Indication: ADENOCARCINOMA
     Dosage: UNK
     Route: 065
     Dates: end: 20170309

REACTIONS (1)
  - Hepatic failure [Unknown]
